FAERS Safety Report 23521241 (Version 2)
Quarter: 2024Q1

REPORT INFORMATION
  Report Type: Spontaneous
  Country: US (occurrence: US)
  Receive Date: 20240214
  Receipt Date: 20240221
  Transmission Date: 20240410
  Serious: No
  Sender: FDA-Public Use
  Company Number: US-AMGEN-USASP2024028155

PATIENT
  Age: 60 Year
  Sex: Female

DRUGS (1)
  1. REPATHA [Suspect]
     Active Substance: EVOLOCUMAB
     Indication: Product used for unknown indication
     Dosage: UNK
     Route: 065

REACTIONS (5)
  - Pubic pain [Recovered/Resolved]
  - Swelling [Recovering/Resolving]
  - Gastroenteritis [Unknown]
  - Influenza like illness [Unknown]
  - Migraine [Unknown]

NARRATIVE: CASE EVENT DATE: 20231112
